FAERS Safety Report 14081629 (Version 1)
Quarter: 2017Q4

REPORT INFORMATION
  Report Type: Spontaneous
  Country: US (occurrence: US)
  Receive Date: 20171013
  Receipt Date: 20171013
  Transmission Date: 20180321
  Serious: No
  Sender: FDA-Public Use
  Company Number: US-ASPEN PHARMA TRADING LIMITED US-AS-2017-006599

PATIENT
  Sex: Female

DRUGS (1)
  1. LEUKERAN [Suspect]
     Active Substance: CHLORAMBUCIL
     Indication: PRODUCT USED FOR UNKNOWN INDICATION
     Dosage: DOSAGE WAS 3 TIMES DAILY FOR 10 DAYS AND REPEATED EVERY 3 WEEKS. THE PATIENT HAD TAKEN 6 TABLETS.
     Route: 065

REACTIONS (2)
  - Product storage error [Unknown]
  - Drug administration error [Unknown]
